FAERS Safety Report 9265278 (Version 5)
Quarter: 2014Q4

REPORT INFORMATION
  Report Type: Report from Study
  Country: BR (occurrence: BR)
  Receive Date: 20130501
  Receipt Date: 20141006
  Transmission Date: 20150529
  Serious: Yes (Hospitalization, Other)
  Sender: FDA-Public Use
  Company Number: BR-ROCHE-1065372

PATIENT
  Sex: Female
  Weight: 98 kg

DRUGS (13)
  1. MABTHERA [Suspect]
     Active Substance: RITUXIMAB
     Route: 065
     Dates: start: 20140901
  2. MABTHERA [Suspect]
     Active Substance: RITUXIMAB
     Route: 065
     Dates: start: 20140915
  3. MABTHERA [Suspect]
     Active Substance: RITUXIMAB
     Indication: RHEUMATOID ARTHRITIS
     Route: 065
     Dates: start: 20120928
  4. ACTEMRA [Suspect]
     Active Substance: TOCILIZUMAB
     Indication: RHEUMATOID ARTHRITIS
     Route: 065
     Dates: start: 20111227
  5. MABTHERA [Suspect]
     Active Substance: RITUXIMAB
     Route: 065
     Dates: start: 2012
  6. CORTISONE [Suspect]
     Active Substance: CORTISONE\HYDROCORTISONE
     Indication: PRODUCT USED FOR UNKNOWN INDICATION
     Route: 065
  7. BENERVA [Concomitant]
     Active Substance: THIAMINE
  8. MABTHERA [Suspect]
     Active Substance: RITUXIMAB
     Route: 065
     Dates: start: 201311
  9. OS-CAL [Concomitant]
  10. PREDSIM [Suspect]
     Active Substance: PREDNISOLONE
     Indication: RHEUMATOID ARTHRITIS
     Route: 065
  11. MABTHERA [Suspect]
     Active Substance: RITUXIMAB
     Route: 065
     Dates: start: 201304
  12. NAPROXENO [Concomitant]
  13. METHOTREXATE [Concomitant]
     Active Substance: METHOTREXATE

REACTIONS (19)
  - Rheumatoid arthritis [Unknown]
  - Labyrinthitis [Recovering/Resolving]
  - Intervertebral disc protrusion [Not Recovered/Not Resolved]
  - Pain [Unknown]
  - Infection [Unknown]
  - Alopecia [Unknown]
  - Diarrhoea [Recovered/Resolved]
  - Laboratory test abnormal [Unknown]
  - Ligament sprain [Recovering/Resolving]
  - Dizziness [Unknown]
  - Influenza [Recovered/Resolved]
  - Fatigue [Unknown]
  - Swelling [Not Recovered/Not Resolved]
  - Calcium deficiency [Not Recovered/Not Resolved]
  - Abdominal pain upper [Not Recovered/Not Resolved]
  - Weight increased [Recovering/Resolving]
  - Ear infection [Recovered/Resolved]
  - Pneumonia [Recovered/Resolved]
  - Arthralgia [Unknown]
